FAERS Safety Report 21130715 (Version 2)
Quarter: 2022Q3

REPORT INFORMATION
  Report Type: Spontaneous
  Country: AU (occurrence: AU)
  Receive Date: 20220726
  Receipt Date: 20220804
  Transmission Date: 20221027
  Serious: No
  Sender: FDA-Public Use
  Company Number: AU-BAXTER-2022BAX015421

PATIENT
  Age: 10 Year
  Sex: Male

DRUGS (2)
  1. DEXTROSE AND SODIUM CHLORIDE [Suspect]
     Active Substance: DEXTROSE MONOHYDRATE\SODIUM CHLORIDE
     Indication: Hypophagia
     Dosage: AT AN INFUSION RATE OF 85 MILLILITERS PER HOUR (ML/HR)
     Route: 065
  2. DEXTROSE AND SODIUM CHLORIDE [Suspect]
     Active Substance: DEXTROSE MONOHYDRATE\SODIUM CHLORIDE
     Indication: Abdominal pain upper

REACTIONS (8)
  - Product colour issue [Unknown]
  - Poor quality product administered [Unknown]
  - Hypersensitivity [Recovered/Resolved]
  - Sinus bradycardia [Recovered/Resolved]
  - Dyspnoea [Recovered/Resolved]
  - Palpitations [Recovered/Resolved]
  - Dizziness [Recovered/Resolved]
  - Pallor [Recovered/Resolved]

NARRATIVE: CASE EVENT DATE: 20220623
